FAERS Safety Report 14799627 (Version 1)
Quarter: 2018Q2

REPORT INFORMATION
  Report Type: Spontaneous
  Country: RO (occurrence: RO)
  Receive Date: 20180424
  Receipt Date: 20180424
  Transmission Date: 20180711
  Serious: Yes (Other)
  Sender: FDA-Public Use
  Company Number: RO-JNJFOC-20180421260

PATIENT
  Age: 40 Year
  Sex: Male

DRUGS (1)
  1. INVEGA [Suspect]
     Active Substance: PALIPERIDONE
     Indication: SCHIZOPHRENIA
     Route: 048

REACTIONS (5)
  - Loss of consciousness [Unknown]
  - Mood altered [Unknown]
  - Testicular pain [Unknown]
  - Influenza like illness [Unknown]
  - Headache [Unknown]
